FAERS Safety Report 10836660 (Version 4)
Quarter: 2015Q1

REPORT INFORMATION
  Report Type: Report from Study
  Country: AU (occurrence: AU)
  Receive Date: 20150219
  Receipt Date: 20150311
  Transmission Date: 20150721
  Serious: Yes (Hospitalization)
  Sender: FDA-Public Use
  Company Number: PHHY2015AU019637

PATIENT
  Age: 37 Year
  Sex: Female

DRUGS (3)
  1. CLOZARIL [Suspect]
     Active Substance: CLOZAPINE
     Dosage: 125 MG
     Route: 048
     Dates: start: 20150208
  2. CLOZARIL [Suspect]
     Active Substance: CLOZAPINE
     Dosage: 12.5 MG
     Route: 048
     Dates: start: 20150203
  3. CLOZARIL [Suspect]
     Active Substance: CLOZAPINE
     Indication: SCHIZOPHRENIA
     Dosage: 300 OT
     Route: 048
     Dates: start: 20140718, end: 20150130

REACTIONS (2)
  - White blood cell count increased [Unknown]
  - Mental impairment [Unknown]

NARRATIVE: CASE EVENT DATE: 20150210
